FAERS Safety Report 14763143 (Version 2)
Quarter: 2018Q2

REPORT INFORMATION
  Report Type: Report from Study
  Country: AR (occurrence: AR)
  Receive Date: 20180416
  Receipt Date: 20180501
  Transmission Date: 20180711
  Serious: Yes (Other)
  Sender: FDA-Public Use
  Company Number: PHHY2018AR061553

PATIENT
  Sex: Female

DRUGS (3)
  1. EXFORGE [Suspect]
     Active Substance: AMLODIPINE BESYLATE\VALSARTAN
     Indication: ARRHYTHMIA
     Dosage: 1 OT, QD (AMLODIPINE 5, VALSARTAN 160, UNITS NOT PROVIDED)
     Route: 065
  2. EXFORGE [Suspect]
     Active Substance: AMLODIPINE BESYLATE\VALSARTAN
     Dosage: 1 DF (AMLODIPINE 5 MG, VALSARTAN 160 MG), BID
     Route: 065
  3. LANOXIN [Concomitant]
     Active Substance: DIGOXIN
     Indication: PRODUCT USED FOR UNKNOWN INDICATION
     Route: 065

REACTIONS (6)
  - Inappropriate schedule of drug administration [Unknown]
  - Cardiac failure [Unknown]
  - Arrhythmia [Recovering/Resolving]
  - Product use in unapproved indication [Unknown]
  - Cataract [Unknown]
  - Electrocardiogram abnormal [Recovered/Resolved]
